FAERS Safety Report 4392984-5 (Version None)
Quarter: 2004Q3

REPORT INFORMATION
  Report Type: 
  Country: None (occurrence: None)
  Receive Date: 20040702
  Receipt Date: 20040420
  Transmission Date: 20050211
  Serious: Yes (Other)
  Sender: FDA-Public Use
  Company Number: 2004UW07942

PATIENT
  Age: 77 Year
  Sex: Female
  Weight: 61.2356 kg

DRUGS (7)
  1. CRESTOR [Suspect]
     Indication: BLOOD CHOLESTEROL INCREASED
     Dosage: 10 MG; PO
     Route: 048
  2. AVAPRO [Concomitant]
  3. LASIX [Concomitant]
  4. VERAPAMIL [Concomitant]
  5. ATENOLOL [Concomitant]
  6. NO MATCH [Concomitant]
  7. MULTIVITAMIN [Concomitant]

REACTIONS (4)
  - ABASIA [None]
  - ASTHENIA [None]
  - MOVEMENT DISORDER [None]
  - PAIN IN EXTREMITY [None]
